FAERS Safety Report 4690264-1 (Version None)
Quarter: 2005Q2

REPORT INFORMATION
  Report Type: 
  Country: None (occurrence: None)
  Receive Date: 20050615
  Receipt Date: 20050510
  Transmission Date: 20051028
  Serious: Yes (Disabling)
  Sender: FDA-Public Use
  Company Number: CA-GLAXOSMITHKLINE-A0558187A

PATIENT
  Age: 58 Year
  Sex: Female
  Weight: 70.5 kg

DRUGS (6)
  1. MALARONE [Suspect]
     Indication: MALARIA PROPHYLAXIS
     Dosage: 250MG PER DAY
     Route: 048
     Dates: start: 20050218, end: 20050406
  2. YELLOW FEVER VACCINE [Concomitant]
  3. DIPHTHERIA VACCINE [Concomitant]
  4. TWINRIX [Concomitant]
  5. POLIO VACCINE [Concomitant]
  6. FLU VACCINE [Concomitant]

REACTIONS (8)
  - ARTHRALGIA [None]
  - ARTHRITIS [None]
  - FEELING HOT [None]
  - JOINT STIFFNESS [None]
  - JOINT SWELLING [None]
  - MUSCULOSKELETAL STIFFNESS [None]
  - OEDEMA PERIPHERAL [None]
  - PAIN IN EXTREMITY [None]
